FAERS Safety Report 5803074-6 (Version None)
Quarter: 2008Q3

REPORT INFORMATION
  Report Type: 
  Country: None (occurrence: None)
  Receive Date: 20080708
  Receipt Date: 20080704
  Transmission Date: 20090109
  Serious: Yes (Other)
  Sender: FDA-Public Use
  Company Number: PHHO2005DE11213

PATIENT
  Sex: Male
  Weight: 97.9 kg

DRUGS (20)
  1. ALISKIREN ALI+TAB [Suspect]
     Indication: ESSENTIAL HYPERTENSION
     Dosage: 300MG
     Route: 048
     Dates: start: 20050331, end: 20050627
  2. LASIX [Suspect]
     Dosage: 160 MG/DAY
  3. ASPIRIN [Concomitant]
     Indication: CORONARY ARTERY DISEASE
  4. LYRICA [Concomitant]
  5. OXYGESIC [Concomitant]
  6. AMITRIPTYLINE HCL [Concomitant]
  7. PENTALONG [Concomitant]
  8. LISINOPRIL [Concomitant]
  9. AMLODIPINE [Concomitant]
  10. DOMPERIDONE [Concomitant]
  11. NIFEDIPINE [Concomitant]
  12. NITROLINGUAL [Concomitant]
  13. SPIRIVA [Concomitant]
  14. OXIS TURBUHALER [Concomitant]
  15. TOREM [Concomitant]
  16. REGEPITHEL [Concomitant]
  17. VITAMIN A [Concomitant]
  18. BUDES [Concomitant]
     Indication: BRONCHITIS CHRONIC
  19. DEXPANTHENOL [Concomitant]
  20. ULTRACORTENOL [Concomitant]

REACTIONS (13)
  - ARTHRALGIA [None]
  - ARTHROPATHY [None]
  - CIRCULATORY COLLAPSE [None]
  - CONSTIPATION [None]
  - ERYTHEMA [None]
  - GAIT DISTURBANCE [None]
  - HAEMORRHOIDAL HAEMORRHAGE [None]
  - LOSS OF CONSCIOUSNESS [None]
  - OEDEMA PERIPHERAL [None]
  - PAIN IN EXTREMITY [None]
  - PAINFUL DEFAECATION [None]
  - SWELLING [None]
  - WEIGHT INCREASED [None]
